FAERS Safety Report 6154052-1 (Version None)
Quarter: 2009Q2

REPORT INFORMATION
  Report Type: 
  Country: None (occurrence: None)
  Receive Date: 20090414
  Receipt Date: 20090410
  Transmission Date: 20091009
  Serious: Yes (Hospitalization)
  Sender: FDA-Public Use
  Company Number: JP-BAYER-200812650BYL

PATIENT
  Age: 60 Year
  Sex: Male
  Weight: 61 kg

DRUGS (3)
  1. NEXAVAR [Suspect]
     Indication: RENAL CELL CARCINOMA STAGE IV
     Dosage: TOTAL DAILY DOSE: 800 MG  UNIT DOSE: 200 MG
     Route: 048
     Dates: start: 20081024, end: 20081116
  2. NEXAVAR [Suspect]
     Dosage: UNIT DOSE: 200 MG
     Route: 048
     Dates: start: 20081201, end: 20090109
  3. NEXAVAR [Suspect]
     Dosage: UNIT DOSE: 200 MG
     Route: 048
     Dates: start: 20090220, end: 20090409

REACTIONS (4)
  - DECUBITUS ULCER [None]
  - HEPATIC FUNCTION ABNORMAL [None]
  - IMPAIRED HEALING [None]
  - PYREXIA [None]
